FAERS Safety Report 5039181-8 (Version None)
Quarter: 2006Q2

REPORT INFORMATION
  Report Type: 
  Country: None (occurrence: None)
  Receive Date: 20060601
  Receipt Date: 20060120
  Transmission Date: 20061013
  Serious: No
  Sender: FDA-Public Use
  Company Number: 2006PV007372

PATIENT
  Age: 57 Year
  Sex: Female
  Weight: 106.1417 kg

DRUGS (6)
  1. BYETTA [Suspect]
     Indication: DIABETES MELLITUS NON-INSULIN-DEPENDENT
     Dosage: SEE IMAGE
     Route: 058
     Dates: start: 20051101, end: 20051201
  2. BYETTA [Suspect]
     Indication: DIABETES MELLITUS NON-INSULIN-DEPENDENT
     Dosage: SEE IMAGE
     Route: 058
     Dates: start: 20051201
  3. GLUCOPHAGE [Concomitant]
  4. ACTOS /USA/ [Concomitant]
  5. HUMALOG [Concomitant]
  6. LANTUS [Concomitant]

REACTIONS (3)
  - BLOOD GLUCOSE INCREASED [None]
  - INJECTION SITE PAIN [None]
  - MEDICATION ERROR [None]
